FAERS Safety Report 25551801 (Version 2)
Quarter: 2025Q3

REPORT INFORMATION
  Report Type: Spontaneous
  Country: US (occurrence: US)
  Receive Date: 20250714
  Receipt Date: 20250808
  Transmission Date: 20251021
  Serious: Yes (Hospitalization, Other)
  Sender: NEUROCRINE BIOSCIENCES
  Company Number: US-NEUROCRINE BIOSCIENCES INC.-2025NBI08894

PATIENT
  Sex: Female

DRUGS (7)
  1. INGREZZA [Suspect]
     Active Substance: VALBENAZINE DITOSYLATE
     Indication: Tardive dyskinesia
     Route: 065
  2. INGREZZA [Suspect]
     Active Substance: VALBENAZINE DITOSYLATE
     Route: 065
  3. INGREZZA [Suspect]
     Active Substance: VALBENAZINE DITOSYLATE
     Route: 065
  4. INGREZZA [Suspect]
     Active Substance: VALBENAZINE DITOSYLATE
     Route: 065
  5. INGREZZA [Suspect]
     Active Substance: VALBENAZINE DITOSYLATE
     Route: 065
  6. LITHIUM [Suspect]
     Active Substance: LITHIUM
     Indication: Suicidal ideation
     Route: 065
  7. LITHIUM [Suspect]
     Active Substance: LITHIUM
     Indication: Bipolar disorder

REACTIONS (7)
  - Hospitalisation [Unknown]
  - Suicidal ideation [Unknown]
  - Bipolar disorder [Unknown]
  - Tardive dyskinesia [Not Recovered/Not Resolved]
  - Depression [Unknown]
  - Anxiety [Unknown]
  - Movement disorder [Unknown]
